FAERS Safety Report 7421578-X (Version None)
Quarter: 2011Q2

REPORT INFORMATION
  Report Type: 
  Country: None (occurrence: None)
  Receive Date: 20110418
  Receipt Date: 20110406
  Transmission Date: 20111010
  Serious: Yes (Life-Threatening)
  Sender: FDA-Public Use
  Company Number: DK-BRISTOL-MYERS SQUIBB COMPANY-15238249

PATIENT
  Age: 2 Month
  Sex: Male
  Weight: 1 kg

DRUGS (4)
  1. LACTULOSE [Concomitant]
     Indication: CONSTIPATION
     Route: 048
     Dates: start: 20100712
  2. URSO FALK [Concomitant]
     Indication: HYPERBILIRUBINAEMIA
     Route: 048
     Dates: start: 20100712
  3. QUESTRAN II WITH NUTRASWEET [Suspect]
     Indication: HYPERBILIRUBINAEMIA
     Dates: start: 20100727, end: 20100805
  4. CAFFEINE CITRATE [Concomitant]
     Indication: RESPIRATORY FAILURE
     Route: 048
     Dates: start: 20100613

REACTIONS (1)
  - ACIDOSIS HYPERCHLORAEMIC [None]
